FAERS Safety Report 25106209 (Version 2)
Quarter: 2025Q1

REPORT INFORMATION
  Report Type: Spontaneous
  Country: US (occurrence: US)
  Receive Date: 20250321
  Receipt Date: 20250324
  Transmission Date: 20250409
  Serious: Yes (Other)
  Sender: XERIS PHARMACEUTICALS
  Company Number: US-BRIAN CONNER SVP QUALITY AND CHIEF COMPLIANCE OFFICER-2024XER00624

PATIENT
  Sex: Female

DRUGS (2)
  1. RECORLEV [Suspect]
     Active Substance: LEVOKETOCONAZOLE
     Indication: Hyperadrenocorticism
     Dosage: 150 MG, 2X/DAY
     Route: 048
     Dates: start: 202312
  2. DOTTI [Suspect]
     Active Substance: ESTRADIOL
     Route: 065

REACTIONS (6)
  - Hysterectomy [Unknown]
  - Hot flush [Not Recovered/Not Resolved]
  - Aggression [Not Recovered/Not Resolved]
  - Product dose omission issue [Unknown]
  - Drug interaction [Unknown]
  - Off label use [Not Recovered/Not Resolved]

NARRATIVE: CASE EVENT DATE: 20240101
